FAERS Safety Report 9735984 (Version 1)
Quarter: 2013Q4

REPORT INFORMATION
  Report Type: Spontaneous
  Country: US (occurrence: None)
  Receive Date: 20131205
  Receipt Date: 20131205
  Transmission Date: 20140711
  Serious: Yes (Hospitalization)
  Sender: FDA-Public Use
  Company Number: None

PATIENT
  Age: 85 Year
  Sex: Female
  Weight: 94.35 kg

DRUGS (7)
  1. LOVENOX [Suspect]
     Indication: PULMONARY EMBOLISM
     Dosage: 1 SYRINGE, BID, SUBCUTANEOUS
     Route: 058
     Dates: start: 20131114, end: 20131120
  2. BENZONATATE 200MG [Concomitant]
  3. PROTONIX 40MG [Concomitant]
  4. WARFARIN 5 MG [Concomitant]
  5. MULTIVITAMIN [Concomitant]
  6. FERROUS GLUCONATE 324 MG [Concomitant]
  7. LUTEIN 10MG [Concomitant]

REACTIONS (1)
  - Abdominal wall haematoma [None]
